FAERS Safety Report 23863454 (Version 1)
Quarter: 2024Q2

REPORT INFORMATION
  Report Type: Spontaneous
  Country: CN (occurrence: None)
  Receive Date: 20240516
  Receipt Date: 20240516
  Transmission Date: 20240715
  Serious: Yes (Other)
  Sender: FDA-Public Use
  Company Number: CN-ROCHE-3563423

PATIENT
  Age: 65 Year
  Sex: Male

DRUGS (1)
  1. TECENTRIQ [Suspect]
     Active Substance: ATEZOLIZUMAB
     Indication: Renal cancer
     Route: 065

REACTIONS (6)
  - Metastases to bone [Unknown]
  - Gastrointestinal disorder [Unknown]
  - Feeding disorder [Unknown]
  - Initial insomnia [Unknown]
  - Weight decreased [Unknown]
  - Off label use [Unknown]
